FAERS Safety Report 4807354-2 (Version None)
Quarter: 2005Q4

REPORT INFORMATION
  Report Type: 
  Country: None (occurrence: None)
  Receive Date: 20051020
  Receipt Date: 20051011
  Transmission Date: 20060501
  Serious: Yes (Hospitalization)
  Sender: FDA-Public Use
  Company Number: 2005-10-0874

PATIENT
  Age: 58 Year
  Sex: Female
  Weight: 114.3065 kg

DRUGS (10)
  1. PEG-INTRON [Suspect]
     Indication: HEPATITIS C
     Dosage: SUBCUTANEOUS
     Route: 058
     Dates: start: 20050729
  2. PEG-INTRON [Suspect]
  3. REBETOL [Suspect]
     Indication: HEPATITIS C
     Dosage: ORAL
     Route: 048
     Dates: start: 20050729
  4. REBETOL [Suspect]
  5. ADVAIR (SALMETEROL/FLUTICASONE) POWDER AEROSOL [Concomitant]
  6. ALBUTEROL AEROSOL SOLUTION [Concomitant]
  7. BENICAR TABLETS HCT [Concomitant]
  8. FLONASE INHALATION SOLUTION [Concomitant]
  9. NEXIUM [Concomitant]
  10. SINGULAIR [Concomitant]

REACTIONS (1)
  - ILL-DEFINED DISORDER [None]
